FAERS Safety Report 6531700-5 (Version None)
Quarter: 2010Q1

REPORT INFORMATION
  Report Type: 
  Country: None (occurrence: None)
  Receive Date: 20100108
  Receipt Date: 20100105
  Transmission Date: 20100710
  Serious: Yes (Death)
  Sender: FDA-Public Use
  Company Number: US-ASTRAZENECA-2010SE00562

PATIENT
  Sex: Female

DRUGS (7)
  1. QUETIAPINE [Suspect]
     Route: 048
  2. ACETAMINOPHEN W/ PROPOXYPHENE HCL [Suspect]
     Route: 048
  3. TRAZODONE HCL [Suspect]
     Route: 048
  4. CLONAZEPAM [Suspect]
     Route: 048
  5. ALPRAZOLAM [Suspect]
     Route: 048
  6. BENZODIAZEPINE [Suspect]
     Route: 048
  7. ACETAMINOPHEN AND HYDROCODONE BITARTRATE [Suspect]
     Route: 048

REACTIONS (1)
  - DRUG TOXICITY [None]
